FAERS Safety Report 18417588 (Version 1)
Quarter: 2020Q4

REPORT INFORMATION
  Report Type: Spontaneous
  Country: US (occurrence: US)
  Receive Date: 20201022
  Receipt Date: 20201022
  Transmission Date: 20210114
  Serious: No
  Sender: FDA-Public Use
  Company Number: US-SEATTLE GENETICS-2020SGN03317

PATIENT
  Sex: Female

DRUGS (4)
  1. TUKYSA [Suspect]
     Active Substance: TUCATINIB
     Indication: BREAST CANCER FEMALE
     Dosage: UNK, BID
  2. TUKYSA [Suspect]
     Active Substance: TUCATINIB
     Dosage: UNK, BID
  3. MARINOL [Suspect]
     Active Substance: DRONABINOL
  4. TUKYSA [Suspect]
     Active Substance: TUCATINIB
     Dosage: 150 MG, BID
     Route: 048
     Dates: start: 20200718

REACTIONS (9)
  - Euphoric mood [Unknown]
  - Tremor [Unknown]
  - Weight decreased [Unknown]
  - Nausea [Unknown]
  - Diarrhoea [Unknown]
  - Decreased appetite [Unknown]
  - Vomiting [Unknown]
  - Dizziness [Unknown]
  - Product dose omission issue [Unknown]
